FAERS Safety Report 18605238 (Version 1)
Quarter: 2020Q4

REPORT INFORMATION
  Report Type: Report from Study
  Country: US (occurrence: US)
  Receive Date: 20201211
  Receipt Date: 20201211
  Transmission Date: 20210114
  Serious: Yes (Other)
  Sender: FDA-Public Use
  Company Number: US-BAYER-2020-268454

PATIENT
  Age: 67 Year
  Sex: Male

DRUGS (4)
  1. CLOPIDOGREL [Interacting]
     Active Substance: CLOPIDOGREL BISULFATE
  2. WARFARIN [Interacting]
     Active Substance: WARFARIN
  3. ASPIRIN. [Suspect]
     Active Substance: ASPIRIN
  4. APIXABAN [Interacting]
     Active Substance: APIXABAN

REACTIONS (2)
  - Labelled drug-drug interaction medication error [None]
  - Epistaxis [None]
